FAERS Safety Report 25120454 (Version 1)
Quarter: 2025Q1

REPORT INFORMATION
  Report Type: Spontaneous
  Country: US (occurrence: US)
  Receive Date: 20250325
  Receipt Date: 20250325
  Transmission Date: 20250409
  Serious: Yes (Other)
  Sender: AMERICAN REGENT
  Company Number: US-AMERICAN REGENT INC-2025001189

PATIENT
  Age: 53 Year
  Sex: Male

DRUGS (9)
  1. NICARDIPINE HYDROCHLORIDE [Suspect]
     Active Substance: NICARDIPINE HYDROCHLORIDE
     Indication: Heart rate abnormal
     Route: 042
  2. NICARDIPINE HYDROCHLORIDE [Suspect]
     Active Substance: NICARDIPINE HYDROCHLORIDE
     Indication: Blood pressure management
     Route: 042
  3. NICARDIPINE HYDROCHLORIDE [Suspect]
     Active Substance: NICARDIPINE HYDROCHLORIDE
     Route: 042
  4. ESMOLOL HYDROCHLORIDE [Suspect]
     Active Substance: ESMOLOL HYDROCHLORIDE
     Indication: Heart rate abnormal
     Route: 042
  5. ESMOLOL HYDROCHLORIDE [Suspect]
     Active Substance: ESMOLOL HYDROCHLORIDE
     Indication: Blood pressure management
  6. FUROSEMIDE [Suspect]
     Active Substance: FUROSEMIDE
     Indication: Diuretic therapy
     Route: 042
  7. FUROSEMIDE [Suspect]
     Active Substance: FUROSEMIDE
     Route: 042
  8. FUROSEMIDE [Suspect]
     Active Substance: FUROSEMIDE
     Route: 042
  9. ATORVASTATIN [Concomitant]
     Active Substance: ATORVASTATIN
     Indication: Hyperlipidaemia
     Route: 065

REACTIONS (5)
  - Respiratory failure [Recovered/Resolved]
  - Atrioventricular block complete [Recovered/Resolved]
  - Drug ineffective for unapproved indication [Unknown]
  - Fluid retention [Unknown]
  - Product use in unapproved indication [Unknown]
